FAERS Safety Report 4861085-1 (Version None)
Quarter: 2005Q4

REPORT INFORMATION
  Report Type: 
  Country: None (occurrence: None)
  Receive Date: 20051220
  Receipt Date: 20051108
  Transmission Date: 20060501
  Serious: Yes (Other)
  Sender: FDA-Public Use
  Company Number: CH-GLAXOSMITHKLINE-B0400392A

PATIENT
  Age: 63 Year
  Sex: Male
  Weight: 79.6 kg

DRUGS (8)
  1. AVANDIA [Suspect]
     Indication: DIABETES MELLITUS NON-INSULIN-DEPENDENT
     Route: 048
     Dates: start: 20020101, end: 20051019
  2. ACE INHIBITOR [Concomitant]
     Indication: OEDEMA PERIPHERAL
     Dates: end: 20050301
  3. DAONIL [Concomitant]
     Indication: DIABETES MELLITUS NON-INSULIN-DEPENDENT
     Route: 048
  4. GLUCOPHAGE [Concomitant]
     Indication: DIABETES MELLITUS NON-INSULIN-DEPENDENT
     Route: 048
  5. NORVASC [Concomitant]
     Route: 048
  6. PRAVASTATIN SODIUM [Concomitant]
     Route: 048
  7. ASPIRIN [Concomitant]
     Route: 048
  8. TENORMIN [Concomitant]
     Route: 048

REACTIONS (7)
  - ASPHYXIA [None]
  - CHEST DISCOMFORT [None]
  - DYSPNOEA [None]
  - NECK DEFORMITY [None]
  - OEDEMA PERIPHERAL [None]
  - SLEEP APNOEA SYNDROME [None]
  - THYROID DISORDER [None]
